FAERS Safety Report 8229373-9 (Version None)
Quarter: 2012Q1

REPORT INFORMATION
  Report Type: 
  Country: None (occurrence: None)
  Receive Date: 20120322
  Receipt Date: 20120320
  Transmission Date: 20120608
  Serious: Yes (Other)
  Sender: FDA-Public Use
  Company Number: US-BRACCO-007732

PATIENT
  Sex: Male

DRUGS (2)
  1. ISOVUE-370 [Suspect]
     Indication: CATHETERISATION CARDIAC
     Route: 013
     Dates: start: 20120201, end: 20120201
  2. ISOVUE-370 [Suspect]
     Indication: CARDIAC STRESS TEST ABNORMAL
     Route: 013
     Dates: start: 20120201, end: 20120201

REACTIONS (1)
  - ATRIOVENTRICULAR BLOCK [None]
